FAERS Safety Report 6546772-1 (Version None)
Quarter: 2010Q1

REPORT INFORMATION
  Report Type: 
  Country: None (occurrence: None)
  Receive Date: 20100119
  Receipt Date: 20100104
  Transmission Date: 20100710
  Serious: Yes (Hospitalization)
  Sender: FDA-Public Use
  Company Number: 2010AC000004

PATIENT
  Age: 57 Year
  Sex: Female

DRUGS (10)
  1. DIGOXIN [Suspect]
     Dosage: 0.125 MG;QD;PO
     Route: 048
     Dates: start: 20090301
  2. BACTRIM [Concomitant]
  3. LORTAB [Concomitant]
  4. TRAMADOL [Concomitant]
  5. SPIRONOLACTONE [Concomitant]
  6. FOSINOPRIL SODIUM [Concomitant]
  7. NEXIUM [Concomitant]
  8. SPIRIVA [Concomitant]
  9. FUROSEMIDE [Concomitant]
  10. ALBUTEROL [Concomitant]

REACTIONS (4)
  - DYSPHAGIA [None]
  - DYSPHONIA [None]
  - LEUKOPLAKIA [None]
  - VOCAL CORD DISORDER [None]
